FAERS Safety Report 4664212-4 (Version None)
Quarter: 2005Q2

REPORT INFORMATION
  Report Type: 
  Country: None (occurrence: None)
  Receive Date: 20050516
  Receipt Date: 20050503
  Transmission Date: 20051028
  Serious: Yes (Hospitalization)
  Sender: FDA-Public Use
  Company Number: 2005072298

PATIENT
  Age: 58 Year
  Sex: Male

DRUGS (1)
  1. BEXTRA [Suspect]
     Indication: ARTHRALGIA
     Dosage: 20 MG (1 IN 1 D)

REACTIONS (13)
  - BLOOD BILIRUBIN INCREASED [None]
  - BLOOD CREATININE INCREASED [None]
  - BLOOD LACTATE DEHYDROGENASE INCREASED [None]
  - C-REACTIVE PROTEIN INCREASED [None]
  - EOSINOPHIL CATIONIC PROTEIN INCREASED [None]
  - EXANTHEM [None]
  - INFLAMMATION [None]
  - LEUKOCYTOSIS [None]
  - LYMPHADENOPATHY [None]
  - MALAISE [None]
  - PYREXIA [None]
  - RASH MACULO-PAPULAR [None]
  - SKIN LESION [None]
